FAERS Safety Report 9382411 (Version 4)
Quarter: 2013Q3

REPORT INFORMATION
  Report Type: Report from Study
  Country: US (occurrence: US)
  Receive Date: 20130703
  Receipt Date: 20130819
  Transmission Date: 20140515
  Serious: No
  Sender: FDA-Public Use
  Company Number: US-VERTEX PHARMACEUTICALS INC-2013-007665

PATIENT
  Age: 45 Year
  Sex: Female
  Weight: 76.64 kg

DRUGS (3)
  1. VX-950 (TELAPREVIR) [Suspect]
     Indication: HEPATITIS C
     Dosage: 750 MG, TID
     Route: 048
     Dates: start: 20130623, end: 20130809
  2. RIBAVIRIN [Suspect]
     Indication: HEPATITIS C
     Dosage: 600 MG IN AM; 400 MG IN PM
     Dates: start: 20130623, end: 20130809
  3. PEGASYS [Suspect]
     Indication: HEPATITIS C
     Dosage: 180 ?G, QW
     Route: 058
     Dates: start: 20130623, end: 20130809

REACTIONS (9)
  - Dehydration [Not Recovered/Not Resolved]
  - Weight decreased [Unknown]
  - Dizziness [Not Recovered/Not Resolved]
  - Miliaria [Not Recovered/Not Resolved]
  - Fatigue [Not Recovered/Not Resolved]
  - Nausea [Not Recovered/Not Resolved]
  - Anorectal discomfort [Recovered/Resolved]
  - Drug ineffective [Not Recovered/Not Resolved]
  - Rash pruritic [Not Recovered/Not Resolved]
